FAERS Safety Report 8105237-6 (Version None)
Quarter: 2012Q1

REPORT INFORMATION
  Report Type: 
  Country: None (occurrence: None)
  Receive Date: 20120201
  Receipt Date: 20120119
  Transmission Date: 20120608
  Serious: Yes (Life-Threatening, Hospitalization, Other)
  Sender: FDA-Public Use
  Company Number: SE-ELI_LILLY_AND_COMPANY-SE201201006466

PATIENT
  Sex: Female

DRUGS (2)
  1. CISPLATIN [Concomitant]
     Indication: LUNG CARCINOMA CELL TYPE UNSPECIFIED STAGE III
     Dosage: UNK
     Dates: start: 20111227
  2. ALIMTA [Suspect]
     Indication: LUNG CARCINOMA CELL TYPE UNSPECIFIED STAGE III
     Dosage: UNK, UNKNOWN
     Dates: start: 20111227

REACTIONS (6)
  - PULMONARY OEDEMA [None]
  - MULTI-ORGAN FAILURE [None]
  - EXTREMITY NECROSIS [None]
  - STREPTOCOCCAL SEPSIS [None]
  - LUNG INFECTION [None]
  - DISSEMINATED INTRAVASCULAR COAGULATION [None]
